FAERS Safety Report 6336387-2 (Version None)
Quarter: 2009Q3

REPORT INFORMATION
  Report Type: 
  Country: None (occurrence: None)
  Receive Date: 20090901
  Receipt Date: 20090817
  Transmission Date: 20100115
  Serious: Yes (Other)
  Sender: FDA-Public Use
  Company Number: US-TYCO HEALTHCARE/MALLINCKRODT-T200901554

PATIENT
  Age: 61 Year
  Sex: Female
  Weight: 53.515 kg

DRUGS (6)
  1. ACETAMINOPHEN AND HYDROCODONE BITARTRATE [Suspect]
     Indication: PROCEDURAL PAIN
     Dosage: 1-2 TABLETS, QID
     Route: 048
     Dates: start: 20090408, end: 20090522
  2. WELLBUTRIN [Concomitant]
     Dosage: 150 MG, QD (AM)
     Route: 048
  3. LORAZEPAM [Concomitant]
     Indication: SLEEP DISORDER
     Dosage: 1 MG, QD (HS)
     Route: 048
  4. TRAZODONE [Concomitant]
     Indication: SLEEP DISORDER
     Dosage: 100 MG, QD (HS)
     Route: 048
  5. PRILOSEC [Concomitant]
     Indication: GASTROOESOPHAGEAL REFLUX DISEASE
     Dosage: UNK
     Route: 048
  6. MULTI-VITAMINS [Concomitant]
     Indication: SUPPLEMENTATION THERAPY
     Dosage: UNK
     Route: 048

REACTIONS (6)
  - ABDOMINAL DISCOMFORT [None]
  - DYSPEPSIA [None]
  - DYSPHAGIA [None]
  - GASTROOESOPHAGEAL REFLUX DISEASE [None]
  - NAUSEA [None]
  - WEIGHT DECREASED [None]
